FAERS Safety Report 6132507-3 (Version None)
Quarter: 2009Q1

REPORT INFORMATION
  Report Type: 
  Country: None (occurrence: None)
  Receive Date: 20090324
  Receipt Date: 20080316
  Transmission Date: 20090719
  Serious: Yes (Death, Hospitalization)
  Sender: FDA-Public Use
  Company Number: 188329USA

PATIENT
  Age: 78 Year
  Sex: Female

DRUGS (1)
  1. BISOPROLOL FUMARATE [Suspect]
     Indication: ACUTE MYOCARDIAL INFARCTION
     Dosage: 1.25 MG, 1 IN 1 ONCE ORAL
     Route: 048

REACTIONS (5)
  - BLOOD BICARBONATE DECREASED [None]
  - BLOOD PH INCREASED [None]
  - BLOOD PRESSURE INCREASED [None]
  - NAUSEA [None]
  - VOMITING [None]
